FAERS Safety Report 8477071-9 (Version None)
Quarter: 2012Q2

REPORT INFORMATION
  Report Type: 
  Country: None (occurrence: None)
  Receive Date: 20120629
  Receipt Date: 20120625
  Transmission Date: 20120825
  Serious: No
  Sender: FDA-Public Use
  Company Number: US-PFIZER INC-2012152641

PATIENT
  Sex: Male

DRUGS (1)
  1. VISTARIL [Suspect]
     Dosage: 50 MG, 3X/DAY
     Route: 048

REACTIONS (1)
  - DEPRESSION [None]
